FAERS Safety Report 24916042 (Version 1)
Quarter: 2025Q1

REPORT INFORMATION
  Report Type: Other
  Country: CA (occurrence: CA)
  Receive Date: 20250203
  Receipt Date: 20250203
  Transmission Date: 20250409
  Serious: Yes (Hospitalization, Disabling, Other)
  Sender: Atnahs Healthcare
  Company Number: CA-ATNAHS-ATNAHS20250100585

PATIENT
  Age: 80 Year
  Sex: Male
  Weight: 89 kg

DRUGS (23)
  1. NAPROXEN [Suspect]
     Active Substance: NAPROXEN
     Indication: Product used for unknown indication
  2. ACETYLCYSTEINE [Suspect]
     Active Substance: ACETYLCYSTEINE
     Indication: Product used for unknown indication
  3. ASPIRIN [Suspect]
     Active Substance: ASPIRIN
     Indication: Product used for unknown indication
  4. ACLIDINIUM BROMIDE [Suspect]
     Active Substance: ACLIDINIUM BROMIDE
     Indication: Product used for unknown indication
  5. AMLODIPINE [Suspect]
     Active Substance: AMLODIPINE BESYLATE
     Indication: Product used for unknown indication
  6. AMLODIPINE BESYLATE [Suspect]
     Active Substance: AMLODIPINE BESYLATE
     Indication: Product used for unknown indication
  7. AZITHROMYCIN [Suspect]
     Active Substance: AZITHROMYCIN
     Indication: Product used for unknown indication
  8. BUDESONIDE [Suspect]
     Active Substance: BUDESONIDE
     Indication: Asthma
  9. CICLESONIDE [Suspect]
     Active Substance: CICLESONIDE
     Indication: Asthma
  10. DOXYCYCLINE [Suspect]
     Active Substance: DOXYCYCLINE
     Indication: Product used for unknown indication
  11. LEVOFLOXACIN [Suspect]
     Active Substance: LEVOFLOXACIN
     Indication: Prophylaxis
  12. MELATONIN [Suspect]
     Active Substance: MELATONIN
     Indication: Product used for unknown indication
  13. MESALAMINE [Suspect]
     Active Substance: MESALAMINE
     Indication: Product used for unknown indication
  14. PANTOPRAZOLE [Suspect]
     Active Substance: PANTOPRAZOLE
     Indication: Prophylaxis
  15. PREDNISONE [Suspect]
     Active Substance: PREDNISONE
     Indication: Asthma
  16. PREGABALIN [Suspect]
     Active Substance: PREGABALIN
     Indication: Product used for unknown indication
  17. PREVNAR 13 [Suspect]
     Active Substance: STREPTOCOCCUS PNEUMONIAE TYPE 1 CAPSULAR POLYSACCHARIDE DIPHTHERIA CRM197 PROTEIN CONJUGATE ANTIGEN\
     Indication: Prophylaxis
  18. RAMIPRIL [Suspect]
     Active Substance: RAMIPRIL
     Indication: Asthma prophylaxis
  19. ROSUVASTATIN [Suspect]
     Active Substance: ROSUVASTATIN
     Indication: Asthma
  20. ALBUTEROL SULFATE [Suspect]
     Active Substance: ALBUTEROL SULFATE
     Indication: Asthma prophylaxis
  21. SPIRIVA [Suspect]
     Active Substance: TIOTROPIUM BROMIDE MONOHYDRATE
     Indication: Product used for unknown indication
  22. TAMSULOSIN [Suspect]
     Active Substance: TAMSULOSIN
     Indication: Product used for unknown indication
  23. TIOTROPIUM BROMIDE [Suspect]
     Active Substance: TIOTROPIUM BROMIDE
     Indication: Asthma

REACTIONS (8)
  - Benign prostatic hyperplasia [Unknown]
  - Breath sounds abnormal [Unknown]
  - Bronchiectasis [Unknown]
  - Chronic obstructive pulmonary disease [Unknown]
  - Congenital hiatus hernia [Unknown]
  - Full blood count abnormal [Unknown]
  - Malignant melanoma in situ [Unknown]
  - Transient ischaemic attack [Unknown]
